FAERS Safety Report 6743680-8 (Version None)
Quarter: 2010Q2

REPORT INFORMATION
  Report Type: 
  Country: None (occurrence: None)
  Receive Date: 20100526
  Receipt Date: 20100526
  Transmission Date: 20101027
  Serious: No
  Sender: FDA-Public Use
  Company Number: None

PATIENT
  Age: 61 Year
  Sex: Male
  Weight: 56.6996 kg

DRUGS (1)
  1. CIPROFLOXACIN [Suspect]
     Indication: ENTEROCOLITIS INFECTIOUS
     Dosage: 500 MG BID PO
     Route: 048
     Dates: start: 20080430, end: 20080504

REACTIONS (2)
  - TENDONITIS [None]
  - TINNITUS [None]
